FAERS Safety Report 14495433 (Version 1)
Quarter: 2018Q1

REPORT INFORMATION
  Report Type: Spontaneous
  Country: US (occurrence: US)
  Receive Date: 20180206
  Receipt Date: 20180206
  Transmission Date: 20180509
  Serious: No
  Sender: FDA-Public Use
  Company Number: US-SMITH AND NEPHEW, INC-2017SMT00377

PATIENT
  Age: 64 Year
  Sex: Female
  Weight: 106.12 kg

DRUGS (3)
  1. REGRANEX [Suspect]
     Active Substance: BECAPLERMIN
     Indication: WOUND
     Dosage: UNK
     Route: 061
     Dates: start: 201704
  2. REGRANEX [Suspect]
     Active Substance: BECAPLERMIN
     Dosage: UNK
     Route: 061
     Dates: start: 201703, end: 201704
  3. UNSPECIFIED PAIN MEDICATION [Concomitant]
     Active Substance: UNSPECIFIED INGREDIENT

REACTIONS (8)
  - Rash vesicular [Recovering/Resolving]
  - Skin discolouration [Recovering/Resolving]
  - Skin fissures [Recovering/Resolving]
  - Off label use [Not Recovered/Not Resolved]
  - Wound complication [Recovering/Resolving]
  - Pruritus [Recovering/Resolving]
  - Wound dehiscence [Recovering/Resolving]
  - Wound secretion [Recovering/Resolving]

NARRATIVE: CASE EVENT DATE: 201703
